FAERS Safety Report 7802541-3 (Version None)
Quarter: 2011Q4

REPORT INFORMATION
  Report Type: 
  Country: None (occurrence: None)
  Receive Date: 20111007
  Receipt Date: 20110922
  Transmission Date: 20120403
  Serious: Yes (Death, Life-Threatening, Hospitalization)
  Sender: FDA-Public Use
  Company Number: JP-ROCHE-798645

PATIENT
  Sex: Female

DRUGS (12)
  1. VOLTAREN [Suspect]
     Indication: PYREXIA
     Route: 054
     Dates: start: 20090429, end: 20090429
  2. VOLTAREN [Suspect]
     Route: 054
     Dates: start: 20090510, end: 20090510
  3. ACETAMINOPHEN [Suspect]
     Indication: PYREXIA
     Route: 048
     Dates: start: 20090502, end: 20090506
  4. CARNACULIN [Suspect]
     Indication: PRODUCT USED FOR UNKNOWN INDICATION
     Route: 048
     Dates: start: 20090401, end: 20090509
  5. BETAMETHASONE [Suspect]
     Indication: PRODUCT USED FOR UNKNOWN INDICATION
     Route: 047
     Dates: start: 20090401, end: 20090509
  6. ROCEPHIN [Suspect]
     Indication: PRODUCT USED FOR UNKNOWN INDICATION
     Route: 041
     Dates: start: 20090429, end: 20090510
  7. VOLTAREN [Suspect]
     Route: 054
     Dates: start: 20090501, end: 20090501
  8. ASPIRIN [Concomitant]
     Route: 048
     Dates: end: 20090430
  9. VOLTAREN [Suspect]
     Route: 054
     Dates: start: 20090506, end: 20090506
  10. METILON [Suspect]
     Indication: PYREXIA
     Route: 030
     Dates: start: 20090501, end: 20090501
  11. VOLTAREN [Suspect]
     Route: 054
     Dates: start: 20090503, end: 20090503
  12. MICARDIS [Concomitant]
     Route: 048
     Dates: start: 20090401, end: 20090430

REACTIONS (4)
  - SEPSIS [None]
  - LIVER DISORDER [None]
  - TOXIC EPIDERMAL NECROLYSIS [None]
  - DERMATITIS ALLERGIC [None]
